FAERS Safety Report 16634911 (Version 1)
Quarter: 2019Q3

REPORT INFORMATION
  Report Type: Spontaneous
  Country: DE (occurrence: DE)
  Receive Date: 20190726
  Receipt Date: 20190726
  Transmission Date: 20191004
  Serious: No
  Sender: FDA-Public Use
  Company Number: DE-LUPIN PHARMACEUTICALS INC.-2018-04365

PATIENT
  Sex: Male

DRUGS (2)
  1. LAMOTRIGIN-HORMOSAN 50 MG DISPERS [Suspect]
     Active Substance: LAMOTRIGINE
     Indication: PRODUCT USED FOR UNKNOWN INDICATION
     Dosage: UNK (ROUTE VIA PEG TUBE)
     Route: 065
  2. LAMOTRIGIN-HORMOSAN 200 MG DISPERS [Suspect]
     Active Substance: LAMOTRIGINE
     Indication: PRODUCT USED FOR UNKNOWN INDICATION
     Dosage: UNK (ROUTE VIA PEG TUBE)
     Route: 065

REACTIONS (2)
  - No adverse event [Unknown]
  - Incorrect route of product administration [Unknown]
